FAERS Safety Report 6962190-6 (Version None)
Quarter: 2010Q3

REPORT INFORMATION
  Report Type: 
  Country: None (occurrence: None)
  Receive Date: 20100830
  Receipt Date: 20100811
  Transmission Date: 20110219
  Serious: Yes (Hospitalization)
  Sender: FDA-Public Use
  Company Number: 2010MB000040

PATIENT
  Age: 22 Year
  Sex: Female

DRUGS (4)
  1. MOXATAG [Suspect]
     Indication: BRONCHITIS
  2. ASPIRIN [Suspect]
     Indication: BRONCHITIS
  3. BETA-LACTAMASE INHABITOR (NO PREF. NAME) [Suspect]
     Indication: BRONCHITIS
  4. PARACETAMOL WITH PSEUDOEPHIDRINE (NO. PREF. NAME) [Suspect]
     Indication: BRONCHITIS

REACTIONS (16)
  - ALANINE AMINOTRANSFERASE INCREASED [None]
  - ANAEMIA [None]
  - ASPARTATE AMINOTRANSFERASE INCREASED [None]
  - ASTHENIA [None]
  - CONJUNCTIVITIS INFECTIVE [None]
  - GENERAL PHYSICAL HEALTH DETERIORATION [None]
  - HEPATIC ENZYME INCREASED [None]
  - HYPERGLYCAEMIA [None]
  - LEUKOPENIA [None]
  - MALAISE [None]
  - MYALGIA [None]
  - PNEUMONIA [None]
  - SPUTUM PURULENT [None]
  - TOXIC EPIDERMAL NECROLYSIS [None]
  - ULCERATIVE KERATITIS [None]
  - XEROPHTHALMIA [None]
